FAERS Safety Report 5781403-X (Version None)
Quarter: 2008Q2

REPORT INFORMATION
  Report Type: 
  Country: None (occurrence: None)
  Receive Date: 20080623
  Receipt Date: 20080609
  Transmission Date: 20081010
  Serious: Yes (Hospitalization)
  Sender: FDA-Public Use
  Company Number: US-KINGPHARMUSA00001-K200800665

PATIENT

DRUGS (2)
  1. SEPTRA [Suspect]
     Indication: STAPHYLOCOCCAL INFECTION
  2. AZITHROMYCIN [Suspect]
     Indication: SCARLET FEVER

REACTIONS (12)
  - COUGH [None]
  - DRUG RASH WITH EOSINOPHILIA AND SYSTEMIC SYMPTOMS [None]
  - DYSPNOEA [None]
  - EOSINOPHILIA [None]
  - EYE IRRITATION [None]
  - HEPATOMEGALY [None]
  - HYPERBILIRUBINAEMIA [None]
  - LYMPHADENOPATHY [None]
  - OEDEMA [None]
  - PYREXIA [None]
  - RASH ERYTHEMATOUS [None]
  - TRANSAMINASES INCREASED [None]
